FAERS Safety Report 14321134 (Version 1)
Quarter: 2017Q4

REPORT INFORMATION
  Report Type: Spontaneous
  Country: CZ (occurrence: CZ)
  Receive Date: 20171223
  Receipt Date: 20171223
  Transmission Date: 20180321
  Serious: Yes (Death, Other)
  Sender: FDA-Public Use
  Company Number: PHHY2016CZ137468

PATIENT
  Age: 39 Year
  Sex: Female

DRUGS (3)
  1. DEXAMED//DEXAMETHASONE [Concomitant]
     Active Substance: DEXAMETHASONE
     Indication: PRODUCT USED FOR UNKNOWN INDICATION
     Dosage: 8 MG, QD
     Route: 042
  2. RIVOTRIL [Concomitant]
     Active Substance: CLONAZEPAM
     Indication: PRODUCT USED FOR UNKNOWN INDICATION
     Dosage: 0.5 MG, UNK
     Route: 065
  3. HYCAMTIN [Suspect]
     Active Substance: TOPOTECAN HYDROCHLORIDE
     Indication: OVARIAN CANCER
     Route: 042

REACTIONS (7)
  - Abdominal neoplasm [Unknown]
  - Spinal pain [Not Recovered/Not Resolved]
  - Ovarian cancer [Unknown]
  - Metastases to liver [Unknown]
  - Tumour pain [Recovering/Resolving]
  - Pelvic neoplasm [Unknown]
  - Malignant neoplasm progression [Unknown]
